FAERS Safety Report 7520939-8 (Version None)
Quarter: 2011Q2

REPORT INFORMATION
  Report Type: 
  Country: None (occurrence: None)
  Receive Date: 20110603
  Receipt Date: 20110527
  Transmission Date: 20111010
  Serious: Yes (Life-Threatening)
  Sender: FDA-Public Use
  Company Number: GB-TEVA-284037ISR

PATIENT
  Sex: Female
  Weight: 50.848 kg

DRUGS (7)
  1. AMPICILLIN SODIUM/SULBACTAM SODIUM [Concomitant]
     Indication: URINARY TRACT INFECTION
     Route: 048
     Dates: start: 20110224, end: 20110228
  2. SERETIDE [Concomitant]
     Indication: ASTHMA
  3. ASPIRIN [Concomitant]
     Indication: ANTICOAGULANT THERAPY
  4. DILTIAZEM [Concomitant]
     Indication: CARDIAC DISORDER
  5. FUROSEMIDE [Suspect]
     Indication: FLUID RETENTION
     Route: 048
     Dates: start: 20110225, end: 20110228
  6. FUROSEMIDE [Suspect]
     Route: 048
     Dates: start: 20110301, end: 20110304
  7. NOVOLOG [Concomitant]
     Indication: DIABETES MELLITUS
     Dosage: 40 UNITS AND 38 UNITS

REACTIONS (9)
  - DELIRIUM [None]
  - MUSCLE CONTRACTIONS INVOLUNTARY [None]
  - CARBON DIOXIDE INCREASED [None]
  - DYSKINESIA [None]
  - HALLUCINATION [None]
  - LOSS OF CONSCIOUSNESS [None]
  - CONFUSIONAL STATE [None]
  - DYSPNOEA [None]
  - HYPERHIDROSIS [None]
